FAERS Safety Report 8190914-1 (Version None)
Quarter: 2012Q1

REPORT INFORMATION
  Report Type: 
  Country: None (occurrence: None)
  Receive Date: 20120307
  Receipt Date: 20120228
  Transmission Date: 20120608
  Serious: Yes (Hospitalization)
  Sender: FDA-Public Use
  Company Number: US-AMGEN-USACT2011032002

PATIENT
  Age: 58 Year
  Sex: Female

DRUGS (6)
  1. NEULASTA [Suspect]
     Dosage: 6 MG, UNK
     Route: 058
     Dates: start: 20100924
  2. DOXORUBICIN HCL [Concomitant]
     Indication: BREAST CANCER
     Dosage: 60 MG/M2, UNK
     Route: 042
     Dates: start: 20100924
  3. FILGRASTIM [Suspect]
     Indication: BREAST CANCER
     Dosage: 5 MUG/KG, UNK
     Route: 058
     Dates: start: 20100924
  4. BEVACIZUMAB [Concomitant]
     Indication: BREAST CANCER
     Dosage: UNK
     Route: 042
     Dates: start: 20100924
  5. PACLITAXEL [Concomitant]
     Indication: BREAST CANCER
     Dosage: 80 MG/M2, UNK
     Route: 042
  6. CYCLOPHOSPHAMIDE [Concomitant]
     Indication: BREAST CANCER
     Dosage: 600 MG/M2, UNK
     Route: 042
     Dates: start: 20100924

REACTIONS (5)
  - FRACTURE [None]
  - CONJUNCTIVITIS [None]
  - FEBRILE NEUTROPENIA [None]
  - SYNCOPE [None]
  - OCULAR SURFACE DISEASE [None]
